FAERS Safety Report 11186773 (Version 2)
Quarter: 2015Q2

REPORT INFORMATION
  Report Type: Spontaneous
  Country: US (occurrence: CA)
  Receive Date: 20150613
  Receipt Date: 20150618
  Transmission Date: 20150821
  Serious: Yes (Other)
  Sender: FDA-Public Use
  Company Number: US-MYLANLABS-2015M1019215

PATIENT

DRUGS (1)
  1. METHOTREXATE [Suspect]
     Active Substance: METHOTREXATE
     Indication: RHEUMATOID ARTHRITIS
     Dosage: UNK
     Dates: end: 2014

REACTIONS (4)
  - Nail disorder [Recovered/Resolved]
  - Dyspepsia [Recovered/Resolved]
  - Alopecia [Recovered/Resolved]
  - Drug ineffective [Not Recovered/Not Resolved]
